FAERS Safety Report 16014597 (Version 1)
Quarter: 2019Q1

REPORT INFORMATION
  Report Type: Spontaneous
  Country: DE (occurrence: DE)
  Receive Date: 20190227
  Receipt Date: 20190227
  Transmission Date: 20190418
  Serious: Yes (Disabling)
  Sender: FDA-Public Use
  Company Number: DE-TEVA-2019-DE-1015821

PATIENT
  Age: 77 Year
  Sex: Female
  Weight: 65 kg

DRUGS (10)
  1. TORASEMID 10 MG [Concomitant]
     Active Substance: TORSEMIDE
  2. ACTIKERALL [Concomitant]
  3. CANDESARTAN 160 MG [Concomitant]
  4. VENTILASTIN [Concomitant]
     Active Substance: ALBUTEROL SULFATE
  5. METOHEXAL 95 [Concomitant]
  6. ROLENIUM [Concomitant]
     Active Substance: FLUTICASONE PROPIONATE\SALMETEROL XINAFOATE
  7. PROPAFENON 300 MG [Concomitant]
  8. GODAMED [Concomitant]
     Active Substance: ASPIRIN
  9. VALSARTAN/HCT 80/12.5 MG [Suspect]
     Active Substance: HYDROCHLOROTHIAZIDE\VALSARTAN
     Dates: start: 2011, end: 201812
  10. VALSARTAN. [Concomitant]
     Active Substance: VALSARTAN

REACTIONS (1)
  - Actinic keratosis [Not Recovered/Not Resolved]

NARRATIVE: CASE EVENT DATE: 20170903
